FAERS Safety Report 9821554 (Version 1)
Quarter: 2014Q1

REPORT INFORMATION
  Report Type: Spontaneous
  Country: US (occurrence: US)
  Receive Date: 20140116
  Receipt Date: 20140116
  Transmission Date: 20141002
  Serious: No
  Sender: FDA-Public Use
  Company Number: US-PFIZER INC-2014013050

PATIENT
  Age: 61 Year
  Sex: Female
  Weight: 66.21 kg

DRUGS (2)
  1. LYRICA [Suspect]
     Indication: NERVE INJURY
     Dosage: 150 MG (2 CAPSULES OF 75MG AT A TIME), 3X/DAY
     Route: 048
     Dates: start: 201308, end: 20131101
  2. PERCOCET [Concomitant]
     Dosage: UNK

REACTIONS (2)
  - Off label use [Unknown]
  - Balance disorder [Unknown]
